FAERS Safety Report 26200840 (Version 1)
Quarter: 2025Q4

REPORT INFORMATION
  Report Type: Spontaneous
  Country: GB (occurrence: GB)
  Receive Date: 20251226
  Receipt Date: 20251226
  Transmission Date: 20260119
  Serious: Yes (Hospitalization, Other)
  Sender: ALKEM
  Company Number: None

PATIENT
  Age: 41 Year
  Sex: Male

DRUGS (1)
  1. IBUPROFEN [Suspect]
     Active Substance: IBUPROFEN
     Indication: Toothache
     Dosage: UNK (64 TABLETS)
     Route: 065

REACTIONS (1)
  - Renal tubular acidosis [Recovered/Resolved]
